FAERS Safety Report 11450333 (Version 1)
Quarter: 2015Q3

REPORT INFORMATION
  Report Type: Spontaneous
  Country: US (occurrence: None)
  Receive Date: 20150902
  Receipt Date: 20150902
  Transmission Date: 20151125
  Serious: Yes (Hospitalization)
  Sender: FDA-Public Use
  Company Number: None

PATIENT
  Age: 65 Year
  Sex: Male
  Weight: 74.2 kg

DRUGS (1)
  1. GENTAMICIN. [Suspect]
     Active Substance: GENTAMICIN
     Indication: STREPTOCOCCAL ENDOCARDITIS
     Route: 042
     Dates: start: 20150812, end: 20150824

REACTIONS (2)
  - Acute kidney injury [None]
  - Renal tubular necrosis [None]

NARRATIVE: CASE EVENT DATE: 20150824
